FAERS Safety Report 6827322-9 (Version None)
Quarter: 2010Q3

REPORT INFORMATION
  Report Type: 
  Country: None (occurrence: None)
  Receive Date: 20100709
  Receipt Date: 20070110
  Transmission Date: 20110219
  Serious: No
  Sender: FDA-Public Use
  Company Number: US-PFIZER INC-2007003938

PATIENT
  Sex: Female
  Weight: 48.99 kg

DRUGS (10)
  1. CHANTIX [Suspect]
     Indication: SMOKING CESSATION THERAPY
     Dates: start: 20070104
  2. TRIAMTERENE [Concomitant]
     Indication: HYPERTENSION
  3. KLOR-CON [Concomitant]
  4. ACETYLSALICYLIC ACID [Concomitant]
  5. ZYRTEC [Concomitant]
  6. GARLIC [Concomitant]
  7. NIACIN [Concomitant]
  8. OMEGA-3 TRIGLYCERIDES [Concomitant]
  9. CALCIUM CARBONATE [Concomitant]
  10. VITAMINS [Concomitant]

REACTIONS (2)
  - HEADACHE [None]
  - NAUSEA [None]
